FAERS Safety Report 14066380 (Version 2)
Quarter: 2018Q1

REPORT INFORMATION
  Report Type: Spontaneous
  Country: IT (occurrence: IT)
  Receive Date: 20171009
  Receipt Date: 20180124
  Transmission Date: 20180508
  Serious: Yes (Other)
  Sender: FDA-Public Use
  Company Number: IT-JNJFOC-20171007179

PATIENT
  Age: 71 Year
  Sex: Female

DRUGS (4)
  1. FENEXTRA [Concomitant]
     Indication: ARTHRALGIA
     Route: 048
  2. RAMIPRIL ACTAVIS [Concomitant]
     Active Substance: RAMIPRIL
     Indication: HYPERTENSION
     Route: 048
  3. MSM [Concomitant]
     Active Substance: DIMETHYL SULFONE
     Indication: ARTHROPATHY
     Route: 065
  4. PATROL [Suspect]
     Active Substance: ACETAMINOPHEN\TRAMADOL HYDROCHLORIDE
     Indication: PAIN
     Route: 048
     Dates: start: 20170926, end: 20170928

REACTIONS (5)
  - Abdominal pain [Recovered/Resolved]
  - Heart rate decreased [Recovered/Resolved]
  - Vertigo [Recovered/Resolved]
  - Nausea [Recovered/Resolved]
  - Hyperhidrosis [Recovered/Resolved]

NARRATIVE: CASE EVENT DATE: 20170928
